FAERS Safety Report 15883410 (Version 2)
Quarter: 2019Q1

REPORT INFORMATION
  Report Type: Spontaneous
  Country: ES (occurrence: ES)
  Receive Date: 20190129
  Receipt Date: 20190330
  Transmission Date: 20190417
  Serious: Yes (Death, Life-Threatening, Hospitalization, Other)
  Sender: FDA-Public Use
  Company Number: ES-ACCORD-103342

PATIENT
  Age: 81 Year
  Sex: Female

DRUGS (6)
  1. MEROPENEM. [Suspect]
     Active Substance: MEROPENEM
     Indication: ANTIBIOTIC THERAPY
     Route: 065
  2. LINEZOLID. [Suspect]
     Active Substance: LINEZOLID
     Indication: ANTIBIOTIC THERAPY
     Route: 065
  3. PIPERACILLIN/TAZOBACTAM [Suspect]
     Active Substance: PIPERACILLIN SODIUM\TAZOBACTAM SODIUM
     Indication: ANTIBIOTIC THERAPY
     Route: 065
  4. FUROSEMIDE. [Suspect]
     Active Substance: FUROSEMIDE
     Indication: ANTIBIOTIC THERAPY
     Route: 065
  5. PARACETAMOL [Concomitant]
     Active Substance: ACETAMINOPHEN
  6. METAMIZOLE SODIUM [Concomitant]
     Active Substance: METAMIZOLE SODIUM

REACTIONS (13)
  - Febrile neutropenia [Fatal]
  - Thrombocytopenia [Fatal]
  - Acute kidney injury [Unknown]
  - Urosepsis [Fatal]
  - Acute respiratory failure [Fatal]
  - Pneumonia [Fatal]
  - Chills [Fatal]
  - Off label use [Unknown]
  - Respiratory tract infection [Fatal]
  - Female genital tract fistula [Fatal]
  - Dysuria [Fatal]
  - Dyspnoea [Fatal]
  - Cardiac failure [Fatal]
